FAERS Safety Report 15784294 (Version 1)
Quarter: 2019Q1

REPORT INFORMATION
  Report Type: Spontaneous
  Country: CN (occurrence: CN)
  Receive Date: 20190103
  Receipt Date: 20190103
  Transmission Date: 20190417
  Serious: Yes (Hospitalization, Other)
  Sender: FDA-Public Use
  Company Number: CN-ROCHE-2237664

PATIENT
  Age: 54 Year
  Sex: Female
  Weight: 42 kg

DRUGS (6)
  1. OXALIPLATIN. [Suspect]
     Active Substance: OXALIPLATIN
     Indication: ADENOCARCINOMA GASTRIC
     Route: 041
     Dates: start: 20180209
  2. XELODA [Suspect]
     Active Substance: CAPECITABINE
     Dosage: 2 TABLETS FOR MORNING, 3 TABLETS FOR NIGHT
     Route: 048
     Dates: start: 20180409
  3. XELODA [Suspect]
     Active Substance: CAPECITABINE
     Dosage: 2 TABLETS FOR MORNING, 3 TABLETS FOR NIGHT
     Route: 048
     Dates: start: 20180306, end: 20180307
  4. XELODA [Suspect]
     Active Substance: CAPECITABINE
     Indication: ADENOCARCINOMA GASTRIC
     Dosage: 2 TABLETS FOR MORNING, 3 TABLETS FOR NIGHT
     Route: 048
     Dates: start: 20180209
  5. OXALIPLATIN. [Suspect]
     Active Substance: OXALIPLATIN
     Route: 041
     Dates: start: 20180409
  6. OXALIPLATIN. [Suspect]
     Active Substance: OXALIPLATIN
     Route: 041
     Dates: start: 20180306, end: 20180306

REACTIONS (6)
  - Bone marrow failure [Unknown]
  - Vomiting [Unknown]
  - Asthenia [Unknown]
  - Hepatic function abnormal [Recovering/Resolving]
  - Decreased appetite [Unknown]
  - Nausea [Unknown]

NARRATIVE: CASE EVENT DATE: 20180403
